FAERS Safety Report 20475847 (Version 1)
Quarter: 2022Q1

REPORT INFORMATION
  Report Type: Spontaneous
  Country: US (occurrence: None)
  Receive Date: 20220215
  Receipt Date: 20220215
  Transmission Date: 20220423
  Serious: No
  Sender: FDA-Public Use
  Company Number: None

PATIENT
  Age: 32 Year
  Sex: Female
  Weight: 71.21 kg

DRUGS (1)
  1. HUMIRA [Suspect]
     Active Substance: ADALIMUMAB
     Indication: Psoriatic arthropathy
     Dosage: INJECT 40 MG SUBCUTANEOUSLY EVERY 2 WEEKS  IN THE ABDOMEN OR THIGH ROTATING INJECTION SITE AS
     Route: 058
     Dates: start: 202201

REACTIONS (4)
  - Vomiting [None]
  - Illness [None]
  - Renal disorder [None]
  - Pyrexia [None]
